FAERS Safety Report 5323598-8 (Version None)
Quarter: 2007Q2

REPORT INFORMATION
  Report Type: 
  Country: None (occurrence: None)
  Receive Date: 20070508
  Receipt Date: 20070426
  Transmission Date: 20071010
  Serious: Yes (Other)
  Sender: FDA-Public Use
  Company Number: 070420-0000423

PATIENT
  Age: 30 Week
  Sex: Male

DRUGS (4)
  1. DESOXYN [Suspect]
     Indication: DRUG USE FOR UNKNOWN INDICATION
     Dosage: IN UTERO EXPOSURE
  2. ANTIBIOTICS [Concomitant]
  3. RED BLOOD CELLS [Concomitant]
  4. BACLOFEN [Concomitant]

REACTIONS (12)
  - ANAEMIA NEONATAL [None]
  - BREECH PRESENTATION [None]
  - CAESAREAN SECTION [None]
  - CEREBRAL CYST [None]
  - CEREBRAL PALSY [None]
  - DEVELOPMENTAL DELAY [None]
  - DRUG EXPOSURE DURING PREGNANCY [None]
  - DRUG SCREEN POSITIVE [None]
  - NEONATAL RESPIRATORY DISTRESS SYNDROME [None]
  - PERIVENTRICULAR LEUKOMALACIA [None]
  - PREMATURE BABY [None]
  - QUADRIPLEGIA [None]
